FAERS Safety Report 9740372 (Version 1)
Quarter: 2013Q4

REPORT INFORMATION
  Report Type: Spontaneous
  Country: DE (occurrence: DE)
  Receive Date: 20131209
  Receipt Date: 20131209
  Transmission Date: 20140711
  Serious: Yes (Other)
  Sender: FDA-Public Use
  Company Number: CHNY2013DE002744

PATIENT
  Sex: Female

DRUGS (1)
  1. VOLTAREN DOLO [Suspect]
     Indication: PAIN
     Dosage: 25 MG, QD
     Route: 048
     Dates: start: 20131124, end: 20131126

REACTIONS (5)
  - Rash pustular [Not Recovered/Not Resolved]
  - Blister [Not Recovered/Not Resolved]
  - Rash [Not Recovered/Not Resolved]
  - Erythema [Not Recovered/Not Resolved]
  - Condition aggravated [Not Recovered/Not Resolved]
